FAERS Safety Report 5085935-1 (Version None)
Quarter: 2006Q3

REPORT INFORMATION
  Report Type: 
  Country: None (occurrence: None)
  Receive Date: 20060817
  Receipt Date: 20060808
  Transmission Date: 20061208
  Serious: Yes (Other)
  Sender: FDA-Public Use
  Company Number: 2006080723

PATIENT

DRUGS (1)
  1. GABAPENTIN [Suspect]
     Indication: NEURALGIA
     Dosage: 900 MG 300 MG, 3 IN 1 D), ORAL
     Route: 048

REACTIONS (3)
  - DARK CIRCLES UNDER EYES [None]
  - LOSS OF CONSCIOUSNESS [None]
  - SOMATISATION DISORDER [None]
